FAERS Safety Report 4701380-X (Version None)
Quarter: 2005Q2

REPORT INFORMATION
  Report Type: 
  Country: None (occurrence: None)
  Receive Date: 20050624
  Receipt Date: 20050608
  Transmission Date: 20051028
  Serious: Yes (Hospitalization)
  Sender: FDA-Public Use
  Company Number: 2005BI003842

PATIENT
  Age: 51 Year
  Sex: Female

DRUGS (5)
  1. NATALIZUMAB [Suspect]
     Indication: MULTIPLE SCLEROSIS
     Dosage: 300 MG; QM; IV
     Route: 042
     Dates: start: 20050121
  2. NEXIUM [Concomitant]
  3. DARVOCET [Concomitant]
  4. CARAFATE [Concomitant]
  5. HYOSCYAMINE [Concomitant]

REACTIONS (3)
  - HYPOAESTHESIA [None]
  - INTESTINAL OBSTRUCTION [None]
  - PAIN IN EXTREMITY [None]
